APPROVED DRUG PRODUCT: REGADENOSON
Active Ingredient: REGADENOSON
Strength: 0.4MG/5ML (0.08MG/ML)
Dosage Form/Route: SOLUTION;INTRAVENOUS
Application: A218054 | Product #001 | TE Code: AP
Applicant: INDIES PHARMA JAMAICA LTD
Approved: Aug 22, 2024 | RLD: No | RS: No | Type: RX